FAERS Safety Report 7958970-0 (Version None)
Quarter: 2011Q4

REPORT INFORMATION
  Report Type: 
  Country: None (occurrence: None)
  Receive Date: 20111130
  Receipt Date: 20111117
  Transmission Date: 20120403
  Serious: Yes (Life-Threatening, Other)
  Sender: FDA-Public Use
  Company Number: 20110814

PATIENT
  Age: 50 Year
  Sex: Female

DRUGS (1)
  1. KETOROLAC TROMETHAMINE [Suspect]
     Indication: RENAL COLIC
     Dosage: 60 MG ONCE INTRAMUSCULAR
     Route: 030

REACTIONS (6)
  - RENAL FAILURE ACUTE [None]
  - HEPATIC FUNCTION ABNORMAL [None]
  - PURPURA FULMINANS [None]
  - BLOOD BILIRUBIN INCREASED [None]
  - DISSEMINATED INTRAVASCULAR COAGULATION [None]
  - BLOOD ALKALINE PHOSPHATASE INCREASED [None]
